FAERS Safety Report 6030507-5 (Version None)
Quarter: 2009Q1

REPORT INFORMATION
  Report Type: 
  Country: None (occurrence: None)
  Receive Date: 20090106
  Receipt Date: 20090106
  Transmission Date: 20090719
  Serious: Yes (Life-Threatening)
  Sender: FDA-Public Use
  Company Number: None

PATIENT
  Sex: Female
  Weight: 84.37 kg

DRUGS (1)
  1. XYLOCAINE [Suspect]
     Indication: LABOUR COMPLICATION
     Dosage: ONCE SQ
     Route: 058
     Dates: start: 20090101

REACTIONS (2)
  - ANGIOEDEMA [None]
  - HYPOAESTHESIA ORAL [None]
